FAERS Safety Report 7928221-1 (Version None)
Quarter: 2011Q4

REPORT INFORMATION
  Report Type: 
  Country: None (occurrence: None)
  Receive Date: 20111118
  Receipt Date: 20111115
  Transmission Date: 20120403
  Serious: Yes (Hospitalization)
  Sender: FDA-Public Use
  Company Number: FR-SANOFI-AVENTIS-2011SA075046

PATIENT
  Age: 89 Year
  Sex: Female

DRUGS (5)
  1. FENOFIBRATE [Concomitant]
     Route: 065
  2. TRIMEBUTINE [Concomitant]
     Route: 065
  3. CLONAZEPAM [Concomitant]
     Route: 065
  4. PLAVIX [Suspect]
     Route: 048
     Dates: start: 20111026, end: 20111026
  5. FERROUS SULFATE TAB [Concomitant]
     Route: 065

REACTIONS (1)
  - THROMBOCYTOPENIA [None]
